FAERS Safety Report 20508417 (Version 1)
Quarter: 2022Q1

REPORT INFORMATION
  Report Type: Report from Study
  Country: CA (occurrence: None)
  Receive Date: 20220223
  Receipt Date: 20220223
  Transmission Date: 20220423
  Serious: Yes (Hospitalization)
  Sender: FDA-Public Use
  Company Number: CA-CDN-EMD Serono,a division of EMD Inc.-9300836

PATIENT
  Age: 71 Year
  Sex: Female

DRUGS (1)
  1. BAVENCIO [Suspect]
     Active Substance: AVELUMAB
     Indication: Transitional cell carcinoma
     Route: 042
     Dates: start: 20211007

REACTIONS (6)
  - Oesophagitis [Unknown]
  - Upper gastrointestinal haemorrhage [Unknown]
  - Hypercalcaemia [Unknown]
  - Vomiting [Unknown]
  - Nausea [Unknown]
  - Clostridium difficile infection [Unknown]

NARRATIVE: CASE EVENT DATE: 20210101
